FAERS Safety Report 6697578-4 (Version None)
Quarter: 2010Q2

REPORT INFORMATION
  Report Type: 
  Country: None (occurrence: None)
  Receive Date: 20100426
  Receipt Date: 20091014
  Transmission Date: 20101027
  Serious: No
  Sender: FDA-Public Use
  Company Number: US-ABBOTT-09P-163-0603040-00

PATIENT
  Age: 54 Year
  Sex: Female
  Weight: 51.302 kg

DRUGS (1)
  1. AZMACORT [Suspect]
     Indication: ASTHMA
     Dosage: AS NEEDED
     Dates: start: 19820101

REACTIONS (1)
  - DRY MOUTH [None]
